FAERS Safety Report 12508819 (Version 6)
Quarter: 2017Q4

REPORT INFORMATION
  Report Type: Spontaneous
  Country: US (occurrence: US)
  Receive Date: 20160629
  Receipt Date: 20171016
  Transmission Date: 20180320
  Serious: No
  Sender: FDA-Public Use
  Company Number: US-ACTELION-A-US2016-137979

PATIENT
  Age: 69 Year
  Sex: Female
  Weight: 83.9 kg

DRUGS (4)
  1. RECLAST [Suspect]
     Active Substance: ZOLEDRONIC ACID
     Indication: OSTEOPOROSIS
     Dosage: UNK
     Route: 065
  2. TYVASO [Concomitant]
     Active Substance: TREPROSTINIL
  3. AMLODIPINE [Concomitant]
     Active Substance: AMLODIPINE BESYLATE
  4. TRACLEER [Suspect]
     Active Substance: BOSENTAN
     Indication: PULMONARY HYPERTENSION
     Dosage: 125 MG, BID
     Route: 048
     Dates: start: 20080314

REACTIONS (20)
  - Foot operation [Unknown]
  - Sneezing [Unknown]
  - Skin ulcer [Unknown]
  - Pain [Unknown]
  - Lacrimation increased [Unknown]
  - Dizziness [Unknown]
  - Pain in jaw [Unknown]
  - Weight decreased [Unknown]
  - Osteoporosis [Unknown]
  - Dyspnoea [Unknown]
  - Arthropathy [Unknown]
  - Impaired healing [Unknown]
  - Chest pain [Unknown]
  - Insomnia [Unknown]
  - Gastrooesophageal reflux disease [Unknown]
  - Musculoskeletal pain [Unknown]
  - Body temperature increased [Unknown]
  - Rash [Unknown]
  - Decreased appetite [Unknown]
  - Rhinorrhoea [Unknown]

NARRATIVE: CASE EVENT DATE: 20160622
